FAERS Safety Report 18125467 (Version 5)
Quarter: 2020Q4

REPORT INFORMATION
  Report Type: Spontaneous
  Country: US (occurrence: US)
  Receive Date: 20200807
  Receipt Date: 20201119
  Transmission Date: 20210113
  Serious: Yes (Hospitalization)
  Sender: FDA-Public Use
  Company Number: US-KARYOPHARM-2020KPT000826

PATIENT

DRUGS (2)
  1. LEVAQUIN [Concomitant]
     Active Substance: LEVOFLOXACIN
     Indication: PRODUCT USED FOR UNKNOWN INDICATION
  2. XPOVIO [Suspect]
     Active Substance: SELINEXOR
     Indication: DIFFUSE LARGE B-CELL LYMPHOMA
     Dosage: 60 MG, 2X/WEEK
     Route: 048
     Dates: start: 20200720, end: 20200905

REACTIONS (6)
  - Weight decreased [Unknown]
  - Dyspnoea [Unknown]
  - Decreased appetite [Unknown]
  - Swelling face [Unknown]
  - Neoplasm progression [Unknown]
  - Dysphonia [Unknown]

NARRATIVE: CASE EVENT DATE: 202007
